FAERS Safety Report 14894028 (Version 1)
Quarter: 2018Q2

REPORT INFORMATION
  Report Type: Report from Study
  Country: GB (occurrence: GB)
  Receive Date: 20180514
  Receipt Date: 20180514
  Transmission Date: 20180711
  Serious: Yes (Other)
  Sender: FDA-Public Use
  Company Number: GB-TEVA-2018-GB-891036

PATIENT
  Age: 54 Year
  Sex: Female

DRUGS (1)
  1. COPAXONE [Suspect]
     Active Substance: GLATIRAMER ACETATE
     Dosage: COPAXONE 40 MG/ML 3TIMES A WEEK
     Route: 058
     Dates: start: 20170912

REACTIONS (6)
  - Dyspnoea [Unknown]
  - Pruritus [Unknown]
  - Coordination abnormal [Unknown]
  - Injection site reaction [Unknown]
  - Feeling hot [Unknown]
  - Loss of consciousness [Unknown]

NARRATIVE: CASE EVENT DATE: 20180503
